FAERS Safety Report 7574815-5 (Version None)
Quarter: 2011Q2

REPORT INFORMATION
  Report Type: 
  Country: None (occurrence: None)
  Receive Date: 20110627
  Receipt Date: 20110120
  Transmission Date: 20111010
  Serious: Yes (Other)
  Sender: FDA-Public Use
  Company Number: US-BAYER-201038624NA

PATIENT
  Age: 20 Year
  Sex: Female
  Weight: 90.703 kg

DRUGS (6)
  1. YASMIN [Suspect]
     Indication: POLYCYSTIC OVARIES
     Dosage: UNK
     Route: 048
     Dates: start: 20010101, end: 20100101
  2. PROZAC [Concomitant]
  3. ACTOS [Concomitant]
  4. YAZ [Suspect]
     Indication: POLYCYSTIC OVARIES
     Dosage: UNK
     Route: 048
     Dates: start: 20010101, end: 20100101
  5. ACIPHEX [Concomitant]
  6. DROSPIRENONE AND ETHINYL ESTRADIOL [Suspect]
     Indication: PRODUCT USED FOR UNKNOWN INDICATION
     Dosage: THROUGH THE DATE OF HER INJURIES
     Route: 048
     Dates: start: 20010101

REACTIONS (6)
  - GALLBLADDER INJURY [None]
  - CHOLECYSTITIS CHRONIC [None]
  - PAIN [None]
  - SCAR [None]
  - BILIARY DYSKINESIA [None]
  - EMOTIONAL DISTRESS [None]
